FAERS Safety Report 9374296 (Version 3)
Quarter: 2013Q3

REPORT INFORMATION
  Report Type: Spontaneous
  Country: US (occurrence: US)
  Receive Date: 20130628
  Receipt Date: 20130814
  Transmission Date: 20140515
  Serious: No
  Sender: FDA-Public Use
  Company Number: US-PFIZER INC-2013191752

PATIENT
  Age: 60 Year
  Sex: Male

DRUGS (6)
  1. SUTENT [Suspect]
     Indication: NEOPLASM MALIGNANT
     Dosage: 37.5 MG, DAILY X 4 WEEKS ON, OFF 2 WEEKS
     Route: 048
     Dates: start: 20130522
  2. SUTENT [Suspect]
     Dosage: 37.5 MG, CYCLIC (STREGNTH 25MG AND 12.5 MG QDX28 DAYS, 14 DAY OFF)
     Route: 048
     Dates: start: 20130523
  3. METOPROLOL [Concomitant]
     Dosage: UNK
  4. VENTOLIN [Concomitant]
     Dosage: UNK
  5. ALBUTEROL [Concomitant]
     Dosage: UNK
  6. ALLOPURINOL [Concomitant]
     Dosage: UNK

REACTIONS (5)
  - Oral pain [Not Recovered/Not Resolved]
  - Mania [Unknown]
  - Diarrhoea [Unknown]
  - Ageusia [Unknown]
  - Stomatitis [Unknown]
